FAERS Safety Report 8924406 (Version 1)
Quarter: 2012Q4

REPORT INFORMATION
  Report Type: Spontaneous
  Country: US (occurrence: None)
  Receive Date: 20121121
  Receipt Date: 20121121
  Transmission Date: 20130627
  Serious: Yes (Death)
  Sender: FDA-Public Use
  Company Number: None

PATIENT
  Age: 55 Year
  Sex: Male
  Weight: 91.8 kg

DRUGS (1)
  1. TEMODAR 160MG [Suspect]
     Indication: GLIOBLASTOMA
     Dosage: 160MG QD x42days By mouth
     Route: 048
     Dates: start: 20120917, end: 20121015

REACTIONS (1)
  - Septic shock [None]
